FAERS Safety Report 7461435-6 (Version None)
Quarter: 2011Q2

REPORT INFORMATION
  Report Type: 
  Country: None (occurrence: None)
  Receive Date: 20110428
  Receipt Date: 20110419
  Transmission Date: 20111010
  Serious: No
  Sender: FDA-Public Use
  Company Number: 2011-00203

PATIENT
  Age: 74 Year
  Sex: Female
  Weight: 67.1324 kg

DRUGS (2)
  1. LEVOTHYROXINE SODIUM [Concomitant]
  2. ZICAM COLD REMEDY ORAL MIST [Suspect]
     Dates: start: 20100801

REACTIONS (1)
  - AGEUSIA [None]
